FAERS Safety Report 21296548 (Version 1)
Quarter: 2022Q3

REPORT INFORMATION
  Report Type: Spontaneous
  Country: US (occurrence: US)
  Receive Date: 20220906
  Receipt Date: 20220906
  Transmission Date: 20221026
  Serious: No
  Sender: FDA-Public Use
  Company Number: US-AUROBINDO-AUR-APL-2022-015548

PATIENT
  Sex: Female

DRUGS (2)
  1. AMLODIPINE [Suspect]
     Active Substance: AMLODIPINE BESYLATE
     Indication: Product used for unknown indication
     Dosage: UNK
     Route: 065
  2. LENVIMA [Suspect]
     Active Substance: LENVATINIB
     Indication: Adenocarcinoma
     Dosage: 14 MILLIGRAM
     Route: 048
     Dates: start: 20220301

REACTIONS (4)
  - Dizziness [Unknown]
  - Fatigue [Unknown]
  - Erythema [Unknown]
  - Mouth ulceration [Recovered/Resolved]
